FAERS Safety Report 15018563 (Version 1)
Quarter: 2018Q2

REPORT INFORMATION
  Report Type: Spontaneous
  Country: JP (occurrence: JP)
  Receive Date: 20180615
  Receipt Date: 20180615
  Transmission Date: 20180711
  Serious: Yes (Other)
  Sender: FDA-Public Use
  Company Number: JP-ANIPHARMA-2018-JP-000095

PATIENT
  Sex: Male

DRUGS (3)
  1. CASODEX [Suspect]
     Active Substance: BICALUTAMIDE
     Indication: PROSTATE CANCER
     Dosage: 80MG QD
     Route: 048
  2. GONAX [Concomitant]
     Active Substance: DEGARELIX
     Route: 065
  3. PREDNISOLONE. [Concomitant]
     Active Substance: PREDNISOLONE
     Dosage: MORNINGS AND EVENINGS
     Route: 065

REACTIONS (3)
  - Metastasis [Unknown]
  - Malignant neoplasm progression [Unknown]
  - Drug effect incomplete [Recovering/Resolving]
